FAERS Safety Report 20223115 (Version 10)
Quarter: 2023Q2

REPORT INFORMATION
  Report Type: Spontaneous
  Country: US (occurrence: US)
  Receive Date: 20211223
  Receipt Date: 20230610
  Transmission Date: 20230721
  Serious: No
  Sender: FDA-Public Use
  Company Number: US-DSJP-DSU-2021-143406AA

PATIENT
  Age: 31 Year
  Sex: Female

DRUGS (7)
  1. TURALIO [Suspect]
     Active Substance: PEXIDARTINIB HYDROCHLORIDE
     Indication: Giant cell tumour of tendon sheath
     Dosage: 200 MG, BID
     Route: 048
     Dates: start: 20211011
  2. TURALIO [Suspect]
     Active Substance: PEXIDARTINIB HYDROCHLORIDE
     Indication: Synovitis
     Dosage: 200 MG, BID,
     Route: 048
     Dates: start: 20211013
  3. TURALIO [Suspect]
     Active Substance: PEXIDARTINIB HYDROCHLORIDE
     Dosage: 400 MG, BID
     Route: 048
     Dates: start: 20211010
  4. TURALIO [Suspect]
     Active Substance: PEXIDARTINIB HYDROCHLORIDE
     Dosage: 400 MG, BID
     Route: 048
     Dates: start: 20211013
  5. TURALIO [Suspect]
     Active Substance: PEXIDARTINIB HYDROCHLORIDE
     Dosage: 250 MG, BID
     Route: 048
  6. TURALIO [Suspect]
     Active Substance: PEXIDARTINIB HYDROCHLORIDE
     Dosage: 125 MG, BID
     Route: 048
     Dates: start: 20211013
  7. TURALIO [Suspect]
     Active Substance: PEXIDARTINIB HYDROCHLORIDE
     Dosage: 125 MG, BID
     Route: 048
     Dates: start: 20230202, end: 20230425

REACTIONS (11)
  - Skin irritation [Unknown]
  - Rash [Unknown]
  - Product dose omission issue [Recovered/Resolved]
  - Brain fog [Recovered/Resolved]
  - Product dose omission in error [Recovered/Resolved]
  - Knee arthroplasty [Recovered/Resolved]
  - Product dose omission in error [Recovered/Resolved]
  - Rash [Recovered/Resolved]
  - Therapy cessation [Recovered/Resolved]
  - Disease progression [Unknown]
  - Product administration error [Unknown]

NARRATIVE: CASE EVENT DATE: 20211222
